FAERS Safety Report 8056404-1 (Version None)
Quarter: 2012Q1

REPORT INFORMATION
  Report Type: 
  Country: None (occurrence: None)
  Receive Date: 20120112
  Receipt Date: 20120106
  Transmission Date: 20120608
  Serious: Yes (Hospitalization, Other)
  Sender: FDA-Public Use
  Company Number: ADR-2012-00039

PATIENT
  Age: 65 Year
  Sex: Female

DRUGS (3)
  1. HYDROMORPHONE HCL [Concomitant]
  2. BACLOFEN [Suspect]
     Indication: PAIN
     Dosage: 33.310 MCG/DAY,INTRATH
     Route: 037
  3. BUPIVACAINE HCL [Concomitant]

REACTIONS (3)
  - SPINAL COLUMN STENOSIS [None]
  - MASS [None]
  - INFLAMMATION [None]
